FAERS Safety Report 10463468 (Version 1)
Quarter: 2014Q3

REPORT INFORMATION
  Report Type: Spontaneous
  Country: US (occurrence: None)
  Receive Date: 20140918
  Receipt Date: 20140918
  Transmission Date: 20150326
  Serious: No
  Sender: FDA-Public Use
  Company Number: None

PATIENT
  Age: 2 Year
  Sex: Male
  Weight: 12.7 kg

DRUGS (2)
  1. CEFTIN [Suspect]
     Active Substance: CEFUROXIME AXETIL
     Indication: BRONCHITIS
     Route: 048
     Dates: start: 20140818, end: 20140823
  2. CEFTIN [Suspect]
     Active Substance: CEFUROXIME AXETIL
     Indication: IMPETIGO
     Route: 048
     Dates: start: 20140818, end: 20140823

REACTIONS (4)
  - Liquid product physical issue [None]
  - Product reconstitution issue [None]
  - Incorrect drug administration duration [None]
  - Product quality issue [None]

NARRATIVE: CASE EVENT DATE: 20140818
